FAERS Safety Report 5862306-9 (Version None)
Quarter: 2008Q3

REPORT INFORMATION
  Report Type: 
  Country: None (occurrence: None)
  Receive Date: 20080826
  Receipt Date: 20080814
  Transmission Date: 20090109
  Serious: No
  Sender: FDA-Public Use
  Company Number: 2008-182169-NL

PATIENT
  Age: 74 Year
  Sex: Female

DRUGS (7)
  1. MIRTAZAPINE [Suspect]
     Indication: DEPRESSION
     Dosage: 30 MG
     Route: 048
     Dates: start: 20080601
  2. LORAZEPAM [Concomitant]
  3. CYTARABINE [Concomitant]
  4. GAVISCON [Concomitant]
  5. CALCIUM [Concomitant]
  6. RISPERIDONE [Concomitant]
  7. GALANTAMINE HYDROBROMIDE [Concomitant]

REACTIONS (1)
  - RENAL IMPAIRMENT [None]
